FAERS Safety Report 7929109-2 (Version None)
Quarter: 2011Q4

REPORT INFORMATION
  Report Type: 
  Country: None (occurrence: None)
  Receive Date: 20111119
  Receipt Date: 20111109
  Transmission Date: 20120403
  Serious: Yes (Hospitalization)
  Sender: FDA-Public Use
  Company Number: US-ASTRAZENECA-2010SE55852

PATIENT
  Age: 92 Year
  Sex: Female

DRUGS (4)
  1. STEROIDS [Suspect]
     Route: 065
  2. CRESTOR [Suspect]
     Route: 048
     Dates: end: 20101123
  3. CRESTOR [Suspect]
     Route: 048
     Dates: start: 20101101
  4. COUMADIN [Suspect]
     Route: 065

REACTIONS (10)
  - HAEMOGLOBIN ABNORMAL [None]
  - ASTHENIA [None]
  - BLOOD GLUCOSE INCREASED [None]
  - THROMBOSIS [None]
  - HAEMORRHAGE [None]
  - GLYCOSYLATED HAEMOGLOBIN INCREASED [None]
  - BRONCHITIS [None]
  - URINARY TRACT INFECTION [None]
  - PNEUMONIA [None]
  - MALAISE [None]
